FAERS Safety Report 10957102 (Version 3)
Quarter: 2015Q2

REPORT INFORMATION
  Report Type: Spontaneous
  Country: US (occurrence: US)
  Receive Date: 20150326
  Receipt Date: 20150522
  Transmission Date: 20150821
  Serious: No
  Sender: FDA-Public Use
  Company Number: US-PFIZER INC-2015102677

PATIENT
  Age: 47 Year
  Sex: Male
  Weight: 90.7 kg

DRUGS (2)
  1. FLUCONAZOLE. [Suspect]
     Active Substance: FLUCONAZOLE
     Indication: CANDIDA INFECTION
     Dosage: 150, DAILY FOR 3 DAYS
     Route: 048
     Dates: start: 20150309, end: 20150312
  2. CLOTRIMAZOLE. [Concomitant]
     Active Substance: CLOTRIMAZOLE
     Indication: ANAL CANDIDIASIS
     Dosage: UNK
     Dates: start: 20150309, end: 20150312

REACTIONS (2)
  - Drug hypersensitivity [Unknown]
  - Rash [Not Recovered/Not Resolved]

NARRATIVE: CASE EVENT DATE: 20150314
